FAERS Safety Report 8856405 (Version 1)
Quarter: 2012Q4

REPORT INFORMATION
  Report Type: 
  Country: US (occurrence: US)
  Receive Date: 20121023
  Receipt Date: 20121023
  Transmission Date: 20130627
  Serious: No
  Sender: FDA-Public Use
  Company Number: US-AMGEN-USASP2012057356

PATIENT
  Sex: Female
  Weight: 77.09 kg

DRUGS (7)
  1. ENBREL [Suspect]
     Indication: PSORIASIS
     Dosage: 50 mg, qwk
     Route: 058
  2. ENBREL [Suspect]
     Indication: PSORIATIC ARTHROPATHY
  3. GABAPENTIN [Concomitant]
     Dosage: 100 mg, UNK
  4. FISH OIL [Concomitant]
     Dosage: UNK
  5. OMEGA III [Concomitant]
     Dosage: UNK
  6. BUSPIRONE [Concomitant]
     Dosage: 10 mg, UNK
  7. MULTIVITAMIN                       /00097801/ [Concomitant]
     Dosage: UNK

REACTIONS (4)
  - Therapeutic response decreased [Unknown]
  - Injection site erythema [Unknown]
  - Injection site warmth [Unknown]
  - Psoriasis [Unknown]
